FAERS Safety Report 18510893 (Version 1)
Quarter: 2020Q4

REPORT INFORMATION
  Report Type: Spontaneous
  Country: NL (occurrence: NL)
  Receive Date: 20201117
  Receipt Date: 20201117
  Transmission Date: 20210114
  Serious: Yes (Hospitalization, Disabling)
  Sender: FDA-Public Use
  Company Number: NL-TEVA-2020-NL-1849143

PATIENT
  Age: 52 Year
  Sex: Female
  Weight: 85 kg

DRUGS (1)
  1. ETHINYLESTRADIOL/LEVONORGESTREL TABLET 30/150UG / ETHINYLESTRADIOL/LEV [Suspect]
     Active Substance: ETHINYL ESTRADIOL\LEVONORGESTREL
     Indication: CONTRACEPTION
     Dosage: UNIT DOSE: 1 DF
     Dates: start: 202003, end: 20200307

REACTIONS (3)
  - Therapeutic response unexpected [Unknown]
  - Cerebral infarction [Unknown]
  - Headache [Unknown]

NARRATIVE: CASE EVENT DATE: 20200307
